FAERS Safety Report 8276178-9 (Version None)
Quarter: 2012Q2

REPORT INFORMATION
  Report Type: 
  Country: None (occurrence: None)
  Receive Date: 20120405
  Receipt Date: 20120323
  Transmission Date: 20120825
  Serious: Yes (Death)
  Sender: FDA-Public Use
  Company Number: WAES 1111USA03597

PATIENT
  Age: 61 Year
  Sex: Male

DRUGS (6)
  1. RASILEZ [Concomitant]
  2. LIPITOR [Concomitant]
  3. METFORMIN HCL [Concomitant]
  4. DIOVAN [Concomitant]
  5. JANUVIA [Suspect]
     Indication: TYPE 2 DIABETES MELLITUS
     Dosage: 25 MG/DAILY/PO
     Route: 048
     Dates: start: 20101031
  6. AMARYL [Concomitant]

REACTIONS (1)
  - BLOOD PRESSURE INCREASED [None]
